FAERS Safety Report 9261273 (Version 3)
Quarter: 2013Q2

REPORT INFORMATION
  Report Type: Spontaneous
  Country: US (occurrence: US)
  Receive Date: 20130429
  Receipt Date: 20130528
  Transmission Date: 20140414
  Serious: Yes (Other)
  Sender: FDA-Public Use
  Company Number: US-PFIZER INC-2013130092

PATIENT
  Age: 61 Year
  Sex: Female
  Weight: 72.56 kg

DRUGS (18)
  1. LYRICA [Suspect]
     Indication: NEURALGIA
     Dosage: UNK
     Dates: start: 2010
  2. LYRICA [Suspect]
     Indication: FIBROMYALGIA
     Dosage: 200 MG, DAILY
     Dates: end: 201107
  3. LYRICA [Suspect]
     Indication: NEUROPATHY PERIPHERAL
     Dosage: 75 MG, 1X/DAY
     Dates: start: 2013
  4. TOPAMAX [Suspect]
     Dosage: UNK
     Dates: start: 2012, end: 2012
  5. CYMBALTA [Suspect]
     Indication: PAIN
     Dosage: UNK
     Dates: start: 2012
  6. TEGRETOL [Suspect]
     Dosage: UNK
  7. DEMEROL [Suspect]
     Dosage: UNK
  8. REQUIP [Concomitant]
     Indication: RESTLESS LEGS SYNDROME
     Dosage: 1 MG, DAILY
  9. KEPPRA [Concomitant]
     Dosage: 250 MG DAILY
  10. SYNTHROID [Concomitant]
     Dosage: 0.88 UG, DAILY
  11. LISINOPRIL [Concomitant]
     Dosage: 10 MG, DAILY
  12. PREVACID [Concomitant]
     Indication: GASTROOESOPHAGEAL REFLUX DISEASE
     Dosage: UNK, 1X/DAY
  13. LOMOTIL [Concomitant]
     Dosage: UNK
  14. ADVAIR [Concomitant]
     Dosage: UNK
  15. LIPITOR [Concomitant]
     Dosage: UNK
  16. PREMARIN [Concomitant]
     Dosage: UNK
  17. FLEXERIL [Concomitant]
     Dosage: UNK
  18. PRO-AIR [Concomitant]
     Dosage: UNK

REACTIONS (6)
  - Tooth disorder [Unknown]
  - Drug intolerance [Unknown]
  - Eating disorder [Unknown]
  - Burning sensation [Unknown]
  - Nausea [Unknown]
  - Malaise [Unknown]
